FAERS Safety Report 5322274-5 (Version None)
Quarter: 2007Q2

REPORT INFORMATION
  Report Type: 
  Country: None (occurrence: None)
  Receive Date: 20070511
  Receipt Date: 20070509
  Transmission Date: 20071010
  Serious: Yes (Hospitalization, Disabling)
  Sender: FDA-Public Use
  Company Number: A0650603A

PATIENT
  Age: 55 Year
  Sex: Female

DRUGS (15)
  1. VALTREX [Suspect]
     Indication: GENITAL HERPES
     Dosage: 1G TWICE PER DAY
     Route: 048
     Dates: start: 20050131
  2. ACYCLOVIR [Suspect]
     Indication: GENITAL HERPES
     Dosage: 450MG PER DAY
     Route: 042
     Dates: start: 20050201
  3. FENTANYL [Concomitant]
  4. ZOFRAN [Concomitant]
  5. BENADRYL [Concomitant]
  6. MS CONTIN [Concomitant]
  7. MSIR [Concomitant]
  8. SOMA [Concomitant]
  9. ELAVIL [Concomitant]
  10. AMBIEN [Concomitant]
  11. NEURONTIN [Concomitant]
  12. NEXIUM [Concomitant]
  13. SPIRONOLACTONE [Concomitant]
  14. DETROL [Concomitant]
  15. LASIX [Concomitant]

REACTIONS (7)
  - EMOTIONAL DISTRESS [None]
  - FUNGAL INFECTION [None]
  - PRURITUS [None]
  - RASH [None]
  - ULCER [None]
  - VULVAL ULCERATION [None]
  - VULVOVAGINAL PRURITUS [None]
